FAERS Safety Report 8517793-4 (Version None)
Quarter: 2012Q3

REPORT INFORMATION
  Report Type: 
  Country: None (occurrence: None)
  Receive Date: 20120712
  Receipt Date: 20120712
  Transmission Date: 20120928
  Serious: Yes (Life-Threatening, Hospitalization)
  Sender: FDA-Public Use
  Company Number: None

PATIENT
  Sex: Female

DRUGS (1)
  1. ENOXAPARIN [Suspect]
     Indication: ANTICOAGULANT THERAPY
     Dosage: 80 MG TWICE A DAY SUBDERMAL, APPROXIMATELY 8 EIGHT
     Route: 059

REACTIONS (5)
  - HAEMORRHAGE [None]
  - CONTUSION [None]
  - PAIN [None]
  - PALLOR [None]
  - COUGH [None]
